FAERS Safety Report 8268346-7 (Version None)
Quarter: 2012Q1

REPORT INFORMATION
  Report Type: 
  Country: None (occurrence: None)
  Receive Date: 20120327
  Receipt Date: 20090922
  Transmission Date: 20120608
  Serious: Yes (Other)
  Sender: FDA-Public Use
  Company Number: PHEH2009US10752

PATIENT
  Sex: Male

DRUGS (2)
  1. GLEEVEC [Suspect]
     Indication: CHRONIC MYELOID LEUKAEMIA
     Dosage: 400 MG, QD, ORAL   600 MG, QD, ORAL   800 MG, QD, ORAL
     Route: 048
  2. GLEEVEC [Suspect]
     Indication: CHRONIC MYELOID LEUKAEMIA
     Dosage: 400 MG, QD, ORAL   600 MG, QD, ORAL   800 MG, QD, ORAL
     Route: 048

REACTIONS (6)
  - WHITE BLOOD CELL COUNT INCREASED [None]
  - BONE PAIN [None]
  - MUSCLE SPASMS [None]
  - AMNESIA [None]
  - HEADACHE [None]
  - DRUG INEFFECTIVE [None]
